FAERS Safety Report 13613712 (Version 2)
Quarter: 2017Q3

REPORT INFORMATION
  Report Type: Spontaneous
  Country: JP (occurrence: JP)
  Receive Date: 20170605
  Receipt Date: 20170719
  Transmission Date: 20171127
  Serious: Yes (Other)
  Sender: FDA-Public Use
  Company Number: JP-AMGEN-JPNSP2017085883

PATIENT
  Age: 8 Decade
  Sex: Female

DRUGS (5)
  1. GRAN [Suspect]
     Active Substance: FILGRASTIM
     Indication: PRODUCT USED FOR UNKNOWN INDICATION
     Dosage: UNK
     Route: 058
     Dates: start: 20170418, end: 20170420
  2. CALSED [Concomitant]
     Active Substance: AMRUBICIN HYDROCHLORIDE
     Dosage: UNK
     Route: 065
     Dates: start: 201705, end: 201705
  3. G-LASTA [Suspect]
     Active Substance: PEGFILGRASTIM
     Indication: PRODUCT USED FOR UNKNOWN INDICATION
     Dosage: UNK
     Route: 058
     Dates: start: 20170409, end: 20170409
  4. G-LASTA [Suspect]
     Active Substance: PEGFILGRASTIM
     Dosage: UNK
     Route: 058
     Dates: start: 20170517, end: 20170517
  5. CALSED [Concomitant]
     Active Substance: AMRUBICIN HYDROCHLORIDE
     Dosage: UNK
     Route: 065
     Dates: start: 20170405, end: 20170407

REACTIONS (1)
  - Colony stimulating factor therapy [Unknown]
